FAERS Safety Report 10733870 (Version 1)
Quarter: 2015Q1

REPORT INFORMATION
  Report Type: Spontaneous
  Country: FR (occurrence: FR)
  Receive Date: 20150123
  Receipt Date: 20150123
  Transmission Date: 20150721
  Serious: Yes (Hospitalization)
  Sender: FDA-Public Use
  Company Number: FR-MALLINCKRODT-T201500921

PATIENT
  Age: 74 Year
  Sex: Female

DRUGS (14)
  1. OFIRMEV [Suspect]
     Active Substance: ACETAMINOPHEN
     Indication: OSTEOSYNTHESIS
     Dosage: 10 MG/ML, UNK
     Route: 042
     Dates: start: 20141001, end: 20141004
  2. CARTEOL [Concomitant]
     Active Substance: CARTEOLOL
  3. LEXOMIL [Concomitant]
     Active Substance: BROMAZEPAM
  4. CALCIPARINE [Suspect]
     Active Substance: HEPARIN CALCIUM
     Indication: OSTEOSYNTHESIS
     Dosage: 1DF, UNK
     Route: 058
     Dates: start: 20141001, end: 20141004
  5. NEFOPAM [Concomitant]
     Active Substance: NEFOPAM
     Dosage: UNK
     Dates: start: 20141004
  6. NALBUPHINE [Concomitant]
     Active Substance: NALBUPHINE
     Dosage: UNK
     Dates: start: 20141001, end: 20141010
  7. TOPALGIC [Concomitant]
     Active Substance: TRAMADOL
     Dosage: UNK
     Dates: start: 20141001
  8. INEXIUM [Concomitant]
     Active Substance: ESOMEPRAZOLE
     Dosage: UNK
     Dates: end: 20150123
  9. GLUCIDION [Concomitant]
     Active Substance: GLUCOSE, LIQUID\POTASSIUM CHLORIDE\SODIUM CHLORIDE
     Dosage: UNK
     Dates: start: 20141001, end: 20141004
  10. THERALENE [Concomitant]
     Active Substance: TRIMEPRAZINE
  11. FOLIC ACID. [Concomitant]
     Active Substance: FOLIC ACID
  12. TARDYFERON [Concomitant]
     Active Substance: FERROUS SULFATE\FOLIC ACID
     Dosage: UNK
     Dates: start: 20141001
  13. ONDANSETRON [Concomitant]
     Active Substance: ONDANSETRON
     Dosage: UNK
     Dates: start: 20141001
  14. AUGMENTIN [Concomitant]
     Active Substance: AMOXICILLIN\CLAVULANATE POTASSIUM
     Dosage: UNK
     Dates: start: 20141003, end: 20141015

REACTIONS (1)
  - Thrombocytopenia [Recovered/Resolved]

NARRATIVE: CASE EVENT DATE: 20141003
